FAERS Safety Report 4667079-3 (Version None)
Quarter: 2005Q2

REPORT INFORMATION
  Report Type: 
  Country: None (occurrence: None)
  Receive Date: 20050520
  Receipt Date: 20041207
  Transmission Date: 20051028
  Serious: Yes (Disabling)
  Sender: FDA-Public Use
  Company Number: PHBS2004IT16563

PATIENT
  Age: 65 Year
  Sex: Female

DRUGS (2)
  1. ZOMETA [Suspect]
     Indication: BONE NEOPLASM MALIGNANT
     Dosage: 4 MG, QMO
     Route: 042
     Dates: start: 20020101, end: 20041203
  2. AROMASIN [Concomitant]
     Indication: BREAST CANCER FEMALE
     Route: 048

REACTIONS (1)
  - ASEPTIC NECROSIS BONE [None]
